FAERS Safety Report 22763930 (Version 5)
Quarter: 2023Q4

REPORT INFORMATION
  Report Type: Spontaneous
  Country: JP (occurrence: JP)
  Receive Date: 20230730
  Receipt Date: 20231227
  Transmission Date: 20240110
  Serious: Yes (Life-Threatening, Hospitalization, Other)
  Sender: FDA-Public Use
  Company Number: JP-ABBVIE-5331198

PATIENT
  Age: 30 Year
  Sex: Male
  Weight: 60 kg

DRUGS (10)
  1. SKYRIZI [Suspect]
     Active Substance: RISANKIZUMAB-RZAA
     Indication: Crohn^s disease
     Dosage: DRUG START DATE: 2023
     Route: 058
  2. SKYRIZI [Suspect]
     Active Substance: RISANKIZUMAB-RZAA
     Indication: Crohn^s disease
     Dosage: FORM STRENGTH: 600 MILLIGRAM
     Route: 041
     Dates: start: 20230116, end: 20230116
  3. WARFARIN POTASSIUM [Concomitant]
     Active Substance: WARFARIN POTASSIUM
     Indication: Non-compaction cardiomyopathy
     Route: 048
  4. WARFARIN POTASSIUM [Concomitant]
     Active Substance: WARFARIN POTASSIUM
     Indication: Non-compaction cardiomyopathy
     Route: 048
     Dates: start: 20210728
  5. MESALAMINE [Concomitant]
     Active Substance: MESALAMINE
     Indication: Crohn^s disease
     Route: 048
  6. IVABRADINE [Suspect]
     Active Substance: IVABRADINE
     Indication: Non-compaction cardiomyopathy
     Dosage: START DATE TEXT: AROUND MAY-2020
     Route: 048
  7. CARVEDILOL [Suspect]
     Active Substance: CARVEDILOL
     Indication: Non-compaction cardiomyopathy
     Dosage: START DATE TEXT: AROUND MAY-2020
     Route: 048
  8. CLOSTRIDIUM BUTYRICUM SPORES STRAIN M-55 [Concomitant]
     Active Substance: CLOSTRIDIUM BUTYRICUM SPORES STRAIN M-55
     Indication: Crohn^s disease
  9. ENALAPRIL MALEATE [Suspect]
     Active Substance: ENALAPRIL MALEATE
     Indication: Non-compaction cardiomyopathy
     Dosage: START DATE TEXT: AROUND MAY-2020
     Route: 048
  10. VONOPRAZAN FUMARATE [Concomitant]
     Active Substance: VONOPRAZAN FUMARATE
     Indication: Crohn^s disease

REACTIONS (13)
  - Hyponatraemia [Recovering/Resolving]
  - Nausea [Recovered/Resolved]
  - Hypokalaemia [Recovering/Resolving]
  - Blood sodium decreased [Unknown]
  - Hyponatraemia [Recovering/Resolving]
  - Nausea [Not Recovered/Not Resolved]
  - Vomiting [Recovered/Resolved]
  - Vomiting [Not Recovered/Not Resolved]
  - Vomiting [Recovered/Resolved]
  - Electrolyte imbalance [Recovering/Resolving]
  - Hyponatraemia [Recovering/Resolving]
  - Nausea [Recovering/Resolving]
  - Hyperkalaemia [Recovering/Resolving]

NARRATIVE: CASE EVENT DATE: 20230612
